FAERS Safety Report 6813688-2 (Version None)
Quarter: 2010Q3

REPORT INFORMATION
  Report Type: 
  Country: None (occurrence: None)
  Receive Date: 20100701
  Receipt Date: 20100621
  Transmission Date: 20110219
  Serious: Yes (Other)
  Sender: FDA-Public Use
  Company Number: US-ABBOTT-10P-163-0652564-00

PATIENT
  Sex: Female
  Weight: 68.1 kg

DRUGS (6)
  1. NIASPAN [Suspect]
     Indication: BLOOD TRIGLYCERIDES INCREASED
     Dates: start: 20090101
  2. NIASPAN [Suspect]
     Indication: LOW DENSITY LIPOPROTEIN INCREASED
  3. NIASPAN [Suspect]
  4. NIASPAN [Suspect]
     Dates: end: 20091001
  5. NIASPAN [Suspect]
     Dates: end: 20100201
  6. AZOR [Concomitant]
     Indication: PRODUCT USED FOR UNKNOWN INDICATION

REACTIONS (4)
  - FEELING ABNORMAL [None]
  - FLUSHING [None]
  - HYSTERECTOMY [None]
  - NAUSEA [None]
